FAERS Safety Report 4343832-0 (Version None)
Quarter: 2004Q2

REPORT INFORMATION
  Report Type: 
  Country: None (occurrence: None)
  Receive Date: 20040419
  Receipt Date: 20040407
  Transmission Date: 20050107
  Serious: Yes (Other)
  Sender: FDA-Public Use
  Company Number: DE-JNJFOC-20040401272

PATIENT
  Sex: Male

DRUGS (1)
  1. REMICADE [Suspect]
     Dosage: INTRAVEOUS
     Route: 042

REACTIONS (5)
  - ANAPHYLACTIC REACTION [None]
  - BRONCHOSPASM [None]
  - ERYTHEMA [None]
  - FLUSHING [None]
  - LOSS OF CONSCIOUSNESS [None]
